FAERS Safety Report 25167924 (Version 1)
Quarter: 2025Q2

REPORT INFORMATION
  Report Type: Spontaneous
  Country: GB (occurrence: GB)
  Receive Date: 20250407
  Receipt Date: 20250407
  Transmission Date: 20250716
  Serious: Yes (Hospitalization)
  Sender: PFIZER
  Company Number: GB-PFIZER INC-202500071626

PATIENT
  Age: 29 Year
  Sex: Female

DRUGS (1)
  1. MEDROXYPROGESTERONE\MEDROXYPROGESTERONE ACETATE [Suspect]
     Active Substance: MEDROXYPROGESTERONE\MEDROXYPROGESTERONE ACETATE
     Indication: Contraception
     Dates: end: 20250402

REACTIONS (4)
  - Endometriosis [Recovered/Resolved with Sequelae]
  - Amenorrhoea [Unknown]
  - Weight increased [Unknown]
  - Mood altered [Unknown]

NARRATIVE: CASE EVENT DATE: 20250107
